FAERS Safety Report 7275831 (Version 2)
Quarter: 2014Q2

REPORT INFORMATION
  Report Type: Spontaneous
  Country: JP (occurrence: JP)
  Receive Date: 20100211
  Receipt Date: 20140409
  Transmission Date: 20141212
  Serious: Yes (Hospitalization)
  Sender: FDA-Public Use
  Company Number: JP-ROCHE-646984

PATIENT
  Age: 58 Year
  Sex: Male
  Weight: 72 kg

DRUGS (10)
  1. AVASTIN [Suspect]
     Indication: COLON CANCER METASTATIC
     Route: 041
     Dates: start: 20090406, end: 20090406
  2. ELPLAT [Concomitant]
     Route: 041
     Dates: start: 20090223, end: 20090323
  3. ELPLAT [Concomitant]
     Route: 041
     Dates: start: 20090406, end: 20090406
  4. 5-FU [Concomitant]
     Route: 040
     Dates: start: 20090223, end: 20090323
  5. 5-FU [Concomitant]
     Route: 040
     Dates: start: 20090223, end: 20090323
  6. 5-FU [Concomitant]
     Route: 040
     Dates: start: 20090406, end: 20090406
  7. 5-FU [Concomitant]
     Route: 040
     Dates: start: 20090406, end: 20090407
  8. LEVOFOLINATE [Concomitant]
     Route: 041
     Dates: start: 20090223, end: 20090323
  9. LEVOFOLINATE [Concomitant]
     Route: 041
     Dates: start: 20090406, end: 20090406
  10. HYPEN [Concomitant]
     Route: 048

REACTIONS (3)
  - Large intestine perforation [Recovered/Resolved]
  - Peritonitis [Recovered/Resolved]
  - Large intestine perforation [Recovered/Resolved]
